FAERS Safety Report 5328657-1 (Version None)
Quarter: 2007Q2

REPORT INFORMATION
  Report Type: 
  Country: None (occurrence: None)
  Receive Date: 20070518
  Receipt Date: 20070515
  Transmission Date: 20071010
  Serious: Yes (Other)
  Sender: FDA-Public Use
  Company Number: A0619831A

PATIENT
  Age: 3 Year
  Sex: Female

DRUGS (2)
  1. FLOVENT [Suspect]
     Indication: ASTHMA
     Dosage: 1PUFF TWICE PER DAY
     Route: 055
     Dates: end: 20070101
  2. VENTOLIN [Suspect]
     Indication: ASTHMA
     Route: 055
     Dates: end: 20070101

REACTIONS (4)
  - ASTHMA [None]
  - DRUG HYPERSENSITIVITY [None]
  - DRY SKIN [None]
  - RASH GENERALISED [None]
